FAERS Safety Report 17866438 (Version 3)
Quarter: 2020Q2

REPORT INFORMATION
  Report Type: Spontaneous
  Country: AU (occurrence: AU)
  Receive Date: 20200605
  Receipt Date: 20200629
  Transmission Date: 20200714
  Serious: Yes (Other)
  Sender: FDA-Public Use
  Company Number: AU-PFIZER INC-2020216772

PATIENT
  Age: 32 Year
  Sex: Male

DRUGS (3)
  1. ETOPOSIDE. [Suspect]
     Active Substance: ETOPOSIDE
     Indication: TESTICULAR GERM CELL CANCER
     Dosage: 100 MG/M2, CYCLIC, (ON DAYS 1-5, IN A 21-DAY CYCLE)3 CYCLES
  2. BLEOMYCIN SULFATE [Suspect]
     Active Substance: BLEOMYCIN SULFATE
     Indication: TESTICULAR GERM CELL CANCER
     Dosage: 30000 IU, CYCLIC,  ON DAYS 1, 8 AND 15, IN A 21-DAY CYCLE), 3 CYCLES
  3. CISPLATIN. [Suspect]
     Active Substance: CISPLATIN
     Indication: TESTICULAR GERM CELL CANCER
     Dosage: 20 MG/M2, CYCLIC, (ON DAYS 1-5, IN A 21-DAY CYCLE) 3 CYCLES

REACTIONS (1)
  - Ischaemic stroke [Unknown]
